FAERS Safety Report 19308842 (Version 1)
Quarter: 2021Q2

REPORT INFORMATION
  Report Type: Spontaneous
  Country: US (occurrence: US)
  Receive Date: 20210526
  Receipt Date: 20210526
  Transmission Date: 20210717
  Serious: Yes (Other)
  Sender: FDA-Public Use
  Company Number: US-JNJFOC-20210537632

PATIENT
  Age: 25 Year
  Sex: Female

DRUGS (2)
  1. UPTRAVI [Suspect]
     Active Substance: SELEXIPAG
     Indication: RIGHT-TO-LEFT CARDIAC SHUNT
     Route: 065
  2. SILDENAFIL. [Suspect]
     Active Substance: SILDENAFIL
     Indication: RIGHT-TO-LEFT CARDIAC SHUNT
     Route: 065

REACTIONS (4)
  - Atrial septal defect [Unknown]
  - Right ventricular hypertrophy [Unknown]
  - Exposure during pregnancy [Recovered/Resolved]
  - Right atrial dilatation [Unknown]
